FAERS Safety Report 11176851 (Version 1)
Quarter: 2015Q2

REPORT INFORMATION
  Report Type: Spontaneous
  Country: US (occurrence: None)
  Receive Date: 20150609
  Receipt Date: 20150609
  Transmission Date: 20150821
  Serious: Yes (Hospitalization)
  Sender: FDA-Public Use
  Company Number: None

PATIENT
  Age: 53 Year
  Sex: Female
  Weight: 82.1 kg

DRUGS (7)
  1. WARFARIN (COUMADIN) [Concomitant]
  2. VALPROIC ACID. [Suspect]
     Active Substance: VALPROIC ACID
     Indication: SEIZURE
     Route: 048
  3. LORATADINE (CLARITIN) [Concomitant]
  4. ATENOLOL (TENORMIN) [Concomitant]
  5. DILTIAZEM (DILACOR XR) [Concomitant]
  6. PENICILLIN V POASSIUM (VEETID) [Concomitant]
  7. RANITIDINE (ZANTAC) [Concomitant]

REACTIONS (1)
  - Thrombocytopenia [None]

NARRATIVE: CASE EVENT DATE: 20150604
